FAERS Safety Report 6429226-2 (Version None)
Quarter: 2009Q4

REPORT INFORMATION
  Report Type: 
  Country: None (occurrence: None)
  Receive Date: 20091105
  Receipt Date: 20091023
  Transmission Date: 20100525
  Serious: Yes (Other)
  Sender: FDA-Public Use
  Company Number: PHEH2009US12416

PATIENT
  Sex: Female
  Weight: 107.94 kg

DRUGS (22)
  1. GLEEVEC [Suspect]
     Indication: CHRONIC MYELOID LEUKAEMIA
     Dosage: 600 MG, QD
     Route: 048
  2. GLEEVEC [Suspect]
     Dosage: 400 MG, QD
     Route: 048
     Dates: start: 20081008
  3. FISH OIL [Concomitant]
     Dosage: UNK
  4. CALCIUM [Concomitant]
     Dosage: UNK
  5. MULTI-VITAMINS [Concomitant]
     Dosage: UNK
  6. AMITRIPTYLINE [Concomitant]
     Dosage: UNK
  7. BYETTA [Concomitant]
     Dosage: UNK
  8. METFORMIN [Concomitant]
     Indication: DIABETES MELLITUS
     Dosage: BID
     Route: 048
  9. RANITIDINE [Concomitant]
     Dosage: UNK
  10. LISINOPRIL [Concomitant]
     Dosage: UNK
  11. LIPITOR [Concomitant]
     Dosage: UNK
  12. ALBUTEROL [Concomitant]
     Dosage: UNK
  13. TUSSIONEX [Concomitant]
     Dosage: UNK
  14. PREDNISONE [Concomitant]
     Dosage: UNK
  15. KLOR-CON [Concomitant]
     Dosage: UNK
  16. LASIX [Concomitant]
     Indication: OEDEMA
     Dosage: 20 MG, QD
     Route: 048
  17. POTASSIUM CHLORIDE [Concomitant]
  18. TUMS [Concomitant]
  19. TYLENOL [Concomitant]
  20. ADVIL [Concomitant]
  21. ALEVE [Concomitant]
  22. VITAMIN B6 [Concomitant]

REACTIONS (16)
  - ASPARTATE AMINOTRANSFERASE INCREASED [None]
  - CARPAL TUNNEL SYNDROME [None]
  - CHROMOSOME ANALYSIS ABNORMAL [None]
  - CONDITION AGGRAVATED [None]
  - COUGH [None]
  - DIARRHOEA [None]
  - FLUID RETENTION [None]
  - HAEMOGLOBIN DECREASED [None]
  - MUSCLE SPASMS [None]
  - NEUROPATHY PERIPHERAL [None]
  - OEDEMA PERIPHERAL [None]
  - PARAESTHESIA [None]
  - PERIORBITAL OEDEMA [None]
  - SURGERY [None]
  - SWELLING FACE [None]
  - VOMITING [None]
